FAERS Safety Report 25572548 (Version 2)
Quarter: 2025Q3

REPORT INFORMATION
  Report Type: Spontaneous
  Country: CN (occurrence: CN)
  Receive Date: 20250717
  Receipt Date: 20250730
  Transmission Date: 20251020
  Serious: Yes (Other)
  Sender: ELI LILLY AND COMPANY
  Company Number: CN-ELI_LILLY_AND_COMPANY-CN202507013329

PATIENT
  Age: 62 Year
  Sex: Male

DRUGS (2)
  1. DONANEMAB [Suspect]
     Active Substance: DONANEMAB
     Indication: Cognitive disorder
     Dosage: 700 MG, MONTHLY (1/M) (ONCE EVERY 28 DAYS)
     Route: 042
     Dates: start: 20250612
  2. DONANEMAB [Suspect]
     Active Substance: DONANEMAB
     Indication: Dementia Alzheimer^s type
     Dosage: 700 MG, MONTHLY (1/M) (ONCE EVERY 28 DAYS)
     Route: 042
     Dates: end: 20250711

REACTIONS (2)
  - Infusion related reaction [Recovering/Resolving]
  - Ventricular extrasystoles [Recovering/Resolving]
